FAERS Safety Report 5757284-7 (Version None)
Quarter: 2008Q2

REPORT INFORMATION
  Report Type: 
  Country: None (occurrence: None)
  Receive Date: 20080603
  Receipt Date: 20080527
  Transmission Date: 20081010
  Serious: Yes (Hospitalization)
  Sender: FDA-Public Use
  Company Number: US-ASTRAZENECA-2008UW10688

PATIENT
  Age: 79 Year
  Sex: Female
  Weight: 70.3 kg

DRUGS (10)
  1. SEROQUEL [Suspect]
     Indication: DEMENTIA
     Route: 048
  2. ATIVAN [Concomitant]
     Indication: NERVOUSNESS
  3. ATROVENT [Concomitant]
  4. SINEMET [Concomitant]
  5. TYLENOL [Concomitant]
  6. CARDIZEM [Concomitant]
  7. PREVACID [Concomitant]
  8. PREDNISONE TAB [Concomitant]
  9. INSULIN [Concomitant]
  10. HEPARIN [Concomitant]

REACTIONS (7)
  - CHOKING [None]
  - COUGH [None]
  - DIZZINESS [None]
  - DYSPNOEA [None]
  - ERYTHEMA [None]
  - PYREXIA [None]
  - RESPIRATORY RATE DECREASED [None]
